FAERS Safety Report 7264909 (Version 2)
Quarter: 2013Q1

REPORT INFORMATION
  Report Type: Report from Study
  Country: US (occurrence: US)
  Receive Date: 20100130
  Receipt Date: 20130131
  Transmission Date: 20140127
  Serious: No
  Sender: FDA-Public Use
  Company Number: US-ABBOTT-09P-163-0607726-00

PATIENT
  Age: 56 Year
  Sex: Female
  Weight: 71.28 kg

DRUGS (10)
  1. HUMIRA [Suspect]
     Indication: CROHN^S DISEASE
     Route: 058
     Dates: start: 20071214
  2. BYSTOLIC [Suspect]
  3. DIOVAN [Suspect]
  4. VITAMIN B12 [Concomitant]
     Route: 050
     Dates: start: 2007
  5. PREMARIN [Concomitant]
     Indication: HORMONE REPLACEMENT THERAPY
  6. BUSPAR [Concomitant]
     Indication: IRRITABILITY
  7. CYCLOBENZAPRINE [Concomitant]
     Indication: PAIN
  8. CYCLOBENZAPRINE [Concomitant]
     Indication: POOR QUALITY SLEEP
  9. AMITRIPTYLINE [Concomitant]
     Indication: PAIN
  10. AMITRIPTYLINE [Concomitant]
     Indication: POOR QUALITY SLEEP

REACTIONS (1)
  - Vision blurred [Not Recovered/Not Resolved]
